FAERS Safety Report 10105906 (Version 1)
Quarter: 2014Q2

REPORT INFORMATION
  Report Type: Spontaneous
  Country: RS (occurrence: RS)
  Receive Date: 20140424
  Receipt Date: 20140424
  Transmission Date: 20141212
  Serious: Yes (Hospitalization, Other)
  Sender: FDA-Public Use
  Company Number: PHHY2014RS048643

PATIENT
  Age: 50 Year
  Sex: Female

DRUGS (9)
  1. METHOTREXATE [Suspect]
     Indication: RHEUMATOID ARTHRITIS
     Dosage: 15 MG, QW
     Route: 048
     Dates: start: 200201, end: 201211
  2. METHOTREXATE [Suspect]
     Dosage: 15 MG, QW
     Route: 048
     Dates: start: 201301, end: 201304
  3. RESOCHIN [Concomitant]
     Indication: RHEUMATOID ARTHRITIS
     Dosage: 250 MG
     Dates: start: 200201, end: 201304
  4. NIRYPAN [Concomitant]
     Indication: RHEUMATOID ARTHRITIS
     Dosage: 8 MG DAILY
     Dates: start: 201301, end: 201304
  5. NIRYPAN [Concomitant]
     Dosage: 4 MG DAILY
     Dates: start: 201301, end: 201304
  6. NIRYPAN [Concomitant]
     Dosage: 16 MG DAILY
     Dates: start: 201304
  7. NIRYPAN [Concomitant]
     Dosage: 8 MG DAILY
     Dates: start: 201304
  8. PRONISON [Concomitant]
     Dates: start: 201211
  9. CORTICOSTEROIDS [Concomitant]
     Route: 030
     Dates: start: 200201

REACTIONS (7)
  - Rheumatoid arthritis [Unknown]
  - Thrombocytopenia [Unknown]
  - Leukopenia [Recovered/Resolved]
  - Bronchopneumonia [Unknown]
  - Pyrexia [Unknown]
  - Fundoscopy abnormal [Unknown]
  - Respiratory tract infection [Unknown]
